FAERS Safety Report 14028334 (Version 2)
Quarter: 2017Q4

REPORT INFORMATION
  Report Type: Report from Study
  Country: US (occurrence: US)
  Receive Date: 20170930
  Receipt Date: 20171221
  Transmission Date: 20180321
  Serious: Yes (Other)
  Sender: FDA-Public Use
  Company Number: US-AMGEN-USASL2017144245

PATIENT
  Age: 77 Year
  Sex: Female

DRUGS (5)
  1. PROLIA [Suspect]
     Active Substance: DENOSUMAB
     Indication: OSTEOPENIA
     Dosage: 60 MG, Q6MO
     Route: 065
     Dates: end: 2016
  2. VITAMINS [Concomitant]
     Active Substance: VITAMINS
     Indication: BONE DISORDER
  3. PROLIA [Suspect]
     Active Substance: DENOSUMAB
     Dosage: 60 MG, Q6MO
     Route: 065
     Dates: start: 2016
  4. FISH OIL [Concomitant]
     Active Substance: FISH OIL
     Indication: BONE DISORDER
  5. CALCIUM [Concomitant]
     Active Substance: CALCIUM
     Indication: BONE DISORDER

REACTIONS (13)
  - Musculoskeletal stiffness [Unknown]
  - Dental caries [Unknown]
  - Back pain [Unknown]
  - Jaw disorder [Unknown]
  - Pain [Recovered/Resolved]
  - Neuralgia [Unknown]
  - Bone pain [Unknown]
  - Arthralgia [Recovered/Resolved]
  - Colon cancer [Recovered/Resolved]
  - Neck pain [Unknown]
  - Off label use [Unknown]
  - Musculoskeletal pain [Not Recovered/Not Resolved]
  - Myalgia [Recovered/Resolved]

NARRATIVE: CASE EVENT DATE: 2017
